FAERS Safety Report 18948415 (Version 3)
Quarter: 2021Q4

REPORT INFORMATION
  Report Type: Spontaneous
  Country: US (occurrence: US)
  Receive Date: 20210227
  Receipt Date: 20211011
  Transmission Date: 20220303
  Serious: Yes (Hospitalization, Other)
  Sender: FDA-Public Use
  Company Number: US-CIPLA LTD.-2021US01214

PATIENT

DRUGS (2)
  1. ALENDRONATE [Suspect]
     Active Substance: ALENDRONATE SODIUM
     Indication: Osteoporosis
     Dosage: 70 MILLIGRAM, ONCE A WEEK
     Route: 048
  2. LEVOTHYROXINE [Concomitant]
     Active Substance: LEVOTHYROXINE
     Indication: Thyroid disorder
     Dosage: 25 MILLIGRAM, QD
     Route: 065

REACTIONS (13)
  - Joint dislocation [Recovered/Resolved]
  - Loss of consciousness [Recovered/Resolved]
  - Dysstasia [Recovered/Resolved]
  - Wrist fracture [Recovered/Resolved]
  - Dysgraphia [Recovered/Resolved]
  - Onychoclasis [Unknown]
  - Grip strength decreased [Recovered/Resolved]
  - Dental discomfort [Recovered/Resolved]
  - Loose tooth [Recovered/Resolved]
  - Tooth loss [Recovered/Resolved]
  - Aphasia [Recovered/Resolved]
  - Pain in extremity [Unknown]
  - Arthralgia [Recovered/Resolved]

NARRATIVE: CASE EVENT DATE: 20170101
